FAERS Safety Report 8269072-0 (Version None)
Quarter: 2012Q2

REPORT INFORMATION
  Report Type: 
  Country: None (occurrence: None)
  Receive Date: 20120409
  Receipt Date: 20120404
  Transmission Date: 20120825
  Serious: Yes (Hospitalization)
  Sender: FDA-Public Use
  Company Number: US-PFIZER INC-2012085545

PATIENT
  Sex: Female
  Weight: 63.039 kg

DRUGS (5)
  1. LIPITOR [Suspect]
     Indication: CARDIAC DISORDER
     Dosage: UNKN, DAILY
     Dates: end: 20120101
  2. LEVOTHYROXINE [Concomitant]
     Dosage: 25 MG, DAILY
  3. ATENOLOL [Concomitant]
     Dosage: 25 MG, 2X/DAY
  4. GLIPIZIDE [Suspect]
     Indication: DIABETES MELLITUS
     Dosage: 5 MG, 2X/DAY
  5. ACETYLSALICYLIC ACID [Concomitant]
     Indication: CARDIAC DISORDER
     Dosage: 81 MG, UNK

REACTIONS (3)
  - CARDIAC DISORDER [None]
  - LOSS OF CONSCIOUSNESS [None]
  - BLOOD GLUCOSE INCREASED [None]
